FAERS Safety Report 24591454 (Version 8)
Quarter: 2025Q1

REPORT INFORMATION
  Report Type: Report from Study
  Country: DE (occurrence: DE)
  Receive Date: 20241108
  Receipt Date: 20250317
  Transmission Date: 20250409
  Serious: Yes (Hospitalization)
  Sender: ROCHE
  Company Number: DE-ROCHE-3492854

PATIENT
  Age: 80 Year
  Sex: Male

DRUGS (16)
  1. AVASTIN [Suspect]
     Active Substance: BEVACIZUMAB
     Indication: Neovascular age-related macular degeneration
     Dosage: DATES OF TREATMENT: 06/JUN/2023, 11JUL/2023, 23/AUG/2023, 27/SEP/2023, 07/NOV/2023, 19/DEC/2023, 30/
     Route: 050
     Dates: start: 20230503
  2. VABYSMO [Suspect]
     Active Substance: FARICIMAB-SVOA
     Indication: Neovascular age-related macular degeneration
     Route: 050
     Dates: start: 20230503
  3. METAMIZOLE [Suspect]
     Active Substance: METAMIZOLE
     Indication: Product used for unknown indication
     Route: 065
  4. PREDNISOLONE [Concomitant]
     Active Substance: PREDNISOLONE
  5. ASPIRIN [Concomitant]
     Active Substance: ASPIRIN
  6. AMLODIPINE [Concomitant]
     Active Substance: AMLODIPINE BESYLATE
  7. BISOPROLOL FUMARATE [Concomitant]
     Active Substance: BISOPROLOL FUMARATE
  8. INSULIN LISPRO [Concomitant]
     Active Substance: INSULIN LISPRO
  9. TRAMADOL [Concomitant]
     Active Substance: TRAMADOL
  10. BISOPROLOL [Concomitant]
     Active Substance: BISOPROLOL
  11. CANDESARTAN [Concomitant]
     Active Substance: CANDESARTAN
  12. HYGROTON [Concomitant]
     Active Substance: CHLORTHALIDONE
  13. ATORVASTATIN [Concomitant]
     Active Substance: ATORVASTATIN
  14. Dexagent-Ophtal eye drops [Concomitant]
  15. Dexagent-Ophtal eye ointment [Concomitant]
  16. TAMSULOSIN [Concomitant]
     Active Substance: TAMSULOSIN

REACTIONS (17)
  - Off label use [Unknown]
  - Eye pain [Recovered/Resolved]
  - Vitreous floaters [Recovered/Resolved]
  - Visual impairment [Recovered/Resolved]
  - Benign prostatic hyperplasia [Recovering/Resolving]
  - Spinal pain [Not Recovered/Not Resolved]
  - Eyelid pain [Recovered/Resolved]
  - Peripheral arterial occlusive disease [Recovered/Resolved]
  - Pruritus [Recovered/Resolved]
  - Pustule [Recovered/Resolved]
  - Vomiting [Recovered/Resolved]
  - Pain in extremity [Recovered/Resolved]
  - Dizziness [Recovered/Resolved]
  - Eye haematoma [Recovered/Resolved]
  - Maculopathy [Recovered/Resolved]
  - Lacrimation increased [Recovering/Resolving]
  - Ocular hyperaemia [Recovered/Resolved]

NARRATIVE: CASE EVENT DATE: 20230503
